FAERS Safety Report 14023333 (Version 1)
Quarter: 2017Q3

REPORT INFORMATION
  Report Type: Report from Study
  Country: US (occurrence: US)
  Receive Date: 20170929
  Receipt Date: 20170929
  Transmission Date: 20171128
  Serious: No
  Sender: FDA-Public Use
  Company Number: PHHY2015US004661

PATIENT
  Age: 37 Year
  Sex: Female

DRUGS (1)
  1. GILENYA [Suspect]
     Active Substance: FINGOLIMOD HYDROCHLORIDE
     Indication: MULTIPLE SCLEROSIS
     Dosage: UNK, QD
     Route: 048

REACTIONS (9)
  - Dysphonia [Recovered/Resolved]
  - Constipation [Recovered/Resolved]
  - Flushing [Recovered/Resolved]
  - Dysphagia [Recovered/Resolved]
  - Dizziness postural [Recovered/Resolved]
  - Musculoskeletal pain [Recovered/Resolved]
  - Dizziness postural [Recovered/Resolved]
  - Cough [Recovered/Resolved]
  - Musculoskeletal stiffness [Recovered/Resolved]

NARRATIVE: CASE EVENT DATE: 20140614
